FAERS Safety Report 5614079-2 (Version None)
Quarter: 2008Q1

REPORT INFORMATION
  Report Type: 
  Country: None (occurrence: None)
  Receive Date: 20080130
  Receipt Date: 20080117
  Transmission Date: 20080703
  Serious: Yes (Other)
  Sender: FDA-Public Use
  Company Number: 230001M08BEL

PATIENT
  Age: 42 Year
  Sex: Female
  Weight: 62 kg

DRUGS (6)
  1. REBIF [Suspect]
     Indication: MULTIPLE SCLEROSIS
  2. EFFEXOR EXEL (VENLAFAXINE HYDROCHLORIDE) [Concomitant]
  3. BACLOFEN [Concomitant]
  4. LEKOVIT CA [Concomitant]
  5. OXYBUTYNIN /00538901/ [Concomitant]
  6. CYAMOPSIS TETRAGONOLOBUS GUM [Concomitant]

REACTIONS (1)
  - PANCYTOPENIA [None]
